FAERS Safety Report 20558786 (Version 1)
Quarter: 2022Q1

REPORT INFORMATION
  Report Type: Spontaneous
  Country: US (occurrence: US)
  Receive Date: 20220307
  Receipt Date: 20220307
  Transmission Date: 20220423
  Serious: Yes (Other)
  Sender: FDA-Public Use
  Company Number: US-SA-SAC20220303002078

PATIENT
  Age: 55 Year
  Sex: Female

DRUGS (1)
  1. ZANTAC [Suspect]
     Active Substance: RANITIDINE HYDROCHLORIDE
     Indication: Dyspepsia
     Dosage: QD, UNK
     Dates: start: 199001, end: 200501

REACTIONS (2)
  - Small intestine carcinoma [Unknown]
  - Hepatic cancer stage IV [Not Recovered/Not Resolved]

NARRATIVE: CASE EVENT DATE: 20111201
